FAERS Safety Report 26062479 (Version 1)
Quarter: 2025Q4

REPORT INFORMATION
  Report Type: Report from Study
  Country: US (occurrence: US)
  Receive Date: 20251119
  Receipt Date: 20251119
  Transmission Date: 20260117
  Serious: Yes (Other)
  Sender: ROCHE
  Company Number: US-ROCHE-3509379

PATIENT
  Sex: Female

DRUGS (1)
  1. MYCOPHENOLATE MOFETIL [Suspect]
     Active Substance: MYCOPHENOLATE MOFETIL
     Indication: Liver transplant
     Dosage: 2 CAPS BY MOUTH TWO TIMES DAILY
     Route: 048

REACTIONS (3)
  - Spinal fracture [Unknown]
  - Gait disturbance [Unknown]
  - Mental disorder [Unknown]
